FAERS Safety Report 6795779-8 (Version None)
Quarter: 2010Q2

REPORT INFORMATION
  Report Type: 
  Country: None (occurrence: None)
  Receive Date: 20100625
  Receipt Date: 20100616
  Transmission Date: 20101027
  Serious: Yes (Disabling)
  Sender: FDA-Public Use
  Company Number: GXKR2010GB06186

PATIENT
  Age: 64 Year
  Sex: Male
  Weight: 107 kg

DRUGS (5)
  1. TRAMADOL (NGX) [Suspect]
     Route: 065
  2. CELEBREX [Interacting]
     Indication: ARTHRITIS
     Route: 065
  3. KETOPROFEN [Interacting]
     Route: 065
  4. VFEND [Interacting]
     Indication: BRONCHOPULMONARY ASPERGILLOSIS
     Dosage: 200 MG, BID
     Route: 048
     Dates: start: 20100201, end: 20100507
  5. VFEND [Interacting]

REACTIONS (2)
  - DRUG INTERACTION [None]
  - FEELING ABNORMAL [None]
